FAERS Safety Report 5779747-0 (Version None)
Quarter: 2008Q2

REPORT INFORMATION
  Report Type: 
  Country: None (occurrence: None)
  Receive Date: 20080617
  Receipt Date: 20080602
  Transmission Date: 20081010
  Serious: Yes (Other)
  Sender: FDA-Public Use
  Company Number: S08-FRA-02068-01

PATIENT
  Age: 54 Year
  Sex: Female

DRUGS (2)
  1. ESCITALOPRAM [Suspect]
     Dates: start: 20080401, end: 20080401
  2. ALPRAZOLAM [Suspect]
     Dates: start: 20080401, end: 20080401

REACTIONS (3)
  - ANTINUCLEAR ANTIBODY POSITIVE [None]
  - INFLAMMATION [None]
  - URTICARIA [None]
